FAERS Safety Report 4337304-7 (Version None)
Quarter: 2004Q2

REPORT INFORMATION
  Report Type: 
  Country: None (occurrence: None)
  Receive Date: 20040412
  Receipt Date: 20040412
  Transmission Date: 20050107
  Serious: Yes (Hospitalization)
  Sender: FDA-Public Use
  Company Number: None

PATIENT
  Age: 52 Year
  Sex: Male
  Weight: 87 kg

DRUGS (9)
  1. BUSULFAN [Suspect]
     Indication: ACUTE MYELOID LEUKAEMIA
     Dosage: 1MG/KG QID X 4 D ORAL
     Route: 048
     Dates: start: 20040329, end: 20040401
  2. ETOPOSIDE [Suspect]
     Indication: ACUTE MYELOID LEUKAEMIA
     Dosage: 4900 MG ONCE INTRAVENOUS
     Route: 042
     Dates: start: 20040402, end: 20040402
  3. COUMADIN [Concomitant]
  4. MULTI-VITAMINS [Concomitant]
  5. FLUCONAZOLE [Concomitant]
  6. ACYCLOVIR [Concomitant]
  7. URSDIOL [Concomitant]
  8. ATIVAN [Concomitant]
  9. BENADRYL [Concomitant]

REACTIONS (5)
  - ATELECTASIS [None]
  - CATHETER RELATED COMPLICATION [None]
  - PLEURAL EFFUSION [None]
  - PLEURITIC PAIN [None]
  - PULMONARY EMBOLISM [None]
